FAERS Safety Report 5270320-X (Version None)
Quarter: 2007Q1

REPORT INFORMATION
  Report Type: 
  Country: None (occurrence: None)
  Receive Date: 20070320
  Receipt Date: 20070308
  Transmission Date: 20070707
  Serious: Yes (Other)
  Sender: FDA-Public Use
  Company Number: ES-PFIZER INC-2006126366

PATIENT

DRUGS (2)
  1. SERTRALINE [Suspect]
  2. ASPIRIN [Suspect]

REACTIONS (2)
  - COLITIS [None]
  - COLITIS COLLAGENOUS [None]
